FAERS Safety Report 6569537-3 (Version None)
Quarter: 2010Q1

REPORT INFORMATION
  Report Type: 
  Country: None (occurrence: None)
  Receive Date: 20100203
  Receipt Date: 20100203
  Transmission Date: 20100710
  Serious: Yes (Other)
  Sender: FDA-Public Use
  Company Number: None

PATIENT
  Age: 21 Year
  Sex: Male
  Weight: 102.0593 kg

DRUGS (3)
  1. DIVALPROEX SODIUM [Suspect]
     Indication: CONVULSION
     Dosage: 500 MG 2 MORNING 3 NIGHT
     Dates: start: 20091001
  2. DIVALPROEX SODIUM [Suspect]
     Indication: CONVULSION
     Dosage: 500 MG 2 MORNING 3 NIGHT
     Dates: start: 20091101
  3. DIVALPROEX SODIUM [Suspect]
     Indication: CONVULSION
     Dosage: 500 MG 2 MORNING 3 NIGHT
     Dates: start: 20091201

REACTIONS (3)
  - CONVULSION [None]
  - DRUG INEFFECTIVE [None]
  - PRODUCT SUBSTITUTION ISSUE [None]
